FAERS Safety Report 13956621 (Version 1)
Quarter: 2017Q3

REPORT INFORMATION
  Report Type: Spontaneous
  Country: ES (occurrence: ES)
  Receive Date: 20170911
  Receipt Date: 20170911
  Transmission Date: 20171128
  Serious: Yes (Other)
  Sender: FDA-Public Use
  Company Number: ES-AMGEN-ESPSP2017134724

PATIENT
  Age: 94 Year
  Sex: Female

DRUGS (4)
  1. MIMPARA [Suspect]
     Active Substance: CINACALCET HYDROCHLORIDE
     Indication: HYPERPARATHYROIDISM SECONDARY
     Dosage: 30 MG, BID ((1 TABLET IN THE MORNING AND 1 TABLET AT NIGHT)
     Route: 065
     Dates: start: 2013
  2. DAFLON [Concomitant]
     Active Substance: DIOSMIN\HESPERIDIN
     Dosage: UNK
  3. LIPLAT [Concomitant]
     Dosage: UNK
  4. COZAAR [Concomitant]
     Active Substance: LOSARTAN POTASSIUM
     Indication: HYPERTENSION
     Dosage: UNK

REACTIONS (6)
  - Dementia Alzheimer^s type [Unknown]
  - Thyroid mass [Unknown]
  - Incorrect dosage administered [Unknown]
  - Blood pressure systolic decreased [Unknown]
  - Asthenia [Unknown]
  - Fatigue [Unknown]

NARRATIVE: CASE EVENT DATE: 201708
